FAERS Safety Report 14191630 (Version 1)
Quarter: 2017Q4

REPORT INFORMATION
  Report Type: Spontaneous
  Country: BR (occurrence: BR)
  Receive Date: 20171115
  Receipt Date: 20171115
  Transmission Date: 20180321
  Serious: Yes (Death, Other)
  Sender: FDA-Public Use
  Company Number: BR-BRACCO-2017BR05168

PATIENT
  Age: 83 Year
  Sex: Female

DRUGS (1)
  1. BARIUM SULFATE [Suspect]
     Active Substance: BARIUM SULFATE
     Indication: BARIUM ENEMA
     Route: 054

REACTIONS (2)
  - Intestinal perforation [Fatal]
  - Extravasation [Unknown]
